FAERS Safety Report 16333427 (Version 2)
Quarter: 2020Q3

REPORT INFORMATION
  Report Type: Spontaneous
  Country: US (occurrence: US)
  Receive Date: 20190520
  Receipt Date: 20200831
  Transmission Date: 20201102
  Serious: Yes (Hospitalization, Other)
  Sender: FDA-Public Use
  Company Number: US-GILEAD-2019-0407758

PATIENT
  Age: 33 Year
  Sex: Male

DRUGS (38)
  1. FOLIC ACID. [Concomitant]
     Active Substance: FOLIC ACID
  2. DAPSONE. [Concomitant]
     Active Substance: DAPSONE
  3. DARUNAVIR [Concomitant]
     Active Substance: DARUNAVIR
  4. ATRIPLA [Suspect]
     Active Substance: EFAVIRENZ\EMTRICITABINE\TENOFOVIR DISOPROXIL FUMARATE
     Dosage: UNK
     Route: 048
     Dates: start: 2006, end: 2009
  5. TRUVADA [Suspect]
     Active Substance: EMTRICITABINE\TENOFOVIR DISOPROXIL FUMARATE
     Indication: HIV INFECTION
     Dosage: UNK
     Route: 048
     Dates: start: 2006, end: 2017
  6. PREZCOBIX [Concomitant]
     Active Substance: COBICISTAT\DARUNAVIR ETHANOLATE
  7. SILDENAFIL. [Concomitant]
     Active Substance: SILDENAFIL
  8. AZITHROMYCIN ANHYDROUS. [Concomitant]
     Active Substance: AZITHROMYCIN ANHYDROUS
  9. FLUCONAZOLE. [Concomitant]
     Active Substance: FLUCONAZOLE
  10. RIFABUTIN. [Concomitant]
     Active Substance: RIFABUTIN
  11. TRUVADA [Suspect]
     Active Substance: EMTRICITABINE\TENOFOVIR DISOPROXIL FUMARATE
     Dosage: UNK
     Route: 048
     Dates: start: 2009, end: 2013
  12. TIVICAY [Concomitant]
     Active Substance: DOLUTEGRAVIR SODIUM
  13. FERROUS SULFATE. [Concomitant]
     Active Substance: FERROUS SULFATE
  14. CITALOPRAM [Concomitant]
     Active Substance: CITALOPRAM HYDROBROMIDE
  15. TRAZODONE [Concomitant]
     Active Substance: TRAZODONE HYDROCHLORIDE
  16. PREZISTA [Concomitant]
     Active Substance: DARUNAVIR ETHANOLATE
  17. SYMTUZA [Concomitant]
     Active Substance: COBICISTAT\DARUNAVIR\EMTRICITABINE\TENOFOVIR ALAFENAMIDE
  18. NASCOBAL [Concomitant]
     Active Substance: CYANOCOBALAMIN
  19. MIRTAZAPINE. [Concomitant]
     Active Substance: MIRTAZAPINE
  20. TIMOLOL. [Concomitant]
     Active Substance: TIMOLOL
  21. OMEPRAZOLE. [Concomitant]
     Active Substance: OMEPRAZOLE
  22. LISINOPRIL. [Concomitant]
     Active Substance: LISINOPRIL
  23. NICOTINE. [Concomitant]
     Active Substance: NICOTINE
  24. STRIBILD [Suspect]
     Active Substance: COBICISTAT\ELVITEGRAVIR\EMTRICITABINE\TENOFOVIR DISOPROXIL FUMARATE
     Indication: HIV INFECTION
     Dosage: UNK
     Route: 048
     Dates: start: 2006, end: 2017
  25. NORVIR [Concomitant]
     Active Substance: RITONAVIR
  26. RALTEGRAVIR. [Concomitant]
     Active Substance: RALTEGRAVIR
  27. CALCIUM [Concomitant]
     Active Substance: CALCIUM
  28. BUPROPION. [Concomitant]
     Active Substance: BUPROPION
  29. ALDARA [Concomitant]
     Active Substance: IMIQUIMOD
  30. ETHAMBUTOL [Concomitant]
     Active Substance: ETHAMBUTOL HYDROCHLORIDE
  31. CYCLOBENZAPRINE. [Concomitant]
     Active Substance: CYCLOBENZAPRINE
  32. MULTI?VITAMINS VITAFIT [Concomitant]
     Active Substance: VITAMINS
  33. ATRIPLA [Suspect]
     Active Substance: EFAVIRENZ\EMTRICITABINE\TENOFOVIR DISOPROXIL FUMARATE
     Indication: HIV INFECTION
     Dosage: UNK
     Route: 048
     Dates: start: 2006, end: 2017
  34. ISENTRESS [Concomitant]
     Active Substance: RALTEGRAVIR POTASSIUM
  35. CALCITROL [CALCITRIOL] [Concomitant]
     Active Substance: CALCITRIOL
  36. TAB A VITE [Concomitant]
  37. HYDROCORTISONE. [Concomitant]
     Active Substance: HYDROCORTISONE
  38. RITONAVIR. [Concomitant]
     Active Substance: RITONAVIR

REACTIONS (10)
  - Fatigue [Unknown]
  - Pain [Not Recovered/Not Resolved]
  - Renal failure [Not Recovered/Not Resolved]
  - Economic problem [Not Recovered/Not Resolved]
  - General physical health deterioration [Not Recovered/Not Resolved]
  - Anhedonia [Not Recovered/Not Resolved]
  - Chronic kidney disease [Not Recovered/Not Resolved]
  - Quality of life decreased [Not Recovered/Not Resolved]
  - Anxiety [Not Recovered/Not Resolved]
  - Emotional distress [Not Recovered/Not Resolved]

NARRATIVE: CASE EVENT DATE: 20060806
